FAERS Safety Report 13195724 (Version 1)
Quarter: 2017Q1

REPORT INFORMATION
  Report Type: Spontaneous
  Country: JP (occurrence: JP)
  Receive Date: 20170208
  Receipt Date: 20170208
  Transmission Date: 20170428
  Serious: Yes (Other)
  Sender: FDA-Public Use
  Company Number: JP-009507513-1702JPN000100J

PATIENT
  Age: 79 Year
  Sex: Male

DRUGS (3)
  1. KIPRES [Concomitant]
     Active Substance: MONTELUKAST SODIUM
     Indication: NASAL CONGESTION
     Dosage: UNK UNK, ONCE
     Route: 048
     Dates: start: 20170201, end: 20170201
  2. NASONEX [Suspect]
     Active Substance: MOMETASONE FUROATE
     Indication: NASAL CONGESTION
     Dosage: UNK
     Route: 045
     Dates: start: 20170201
  3. DELLEGRA [Concomitant]
     Active Substance: FEXOFENADINE HYDROCHLORIDE\PSEUDOEPHEDRINE HYDROCHLORIDE
     Indication: NASAL CONGESTION
     Dosage: UNK UNK, ONCE
     Route: 048
     Dates: start: 20170201, end: 20170201

REACTIONS (1)
  - Urinary retention [Unknown]

NARRATIVE: CASE EVENT DATE: 201702
